FAERS Safety Report 10058534 (Version 1)
Quarter: 2014Q2

REPORT INFORMATION
  Report Type: Spontaneous
  Country: US (occurrence: US)
  Receive Date: 20140404
  Receipt Date: 20140404
  Transmission Date: 20141212
  Serious: Yes (Death)
  Sender: FDA-Public Use
  Company Number: US-BAYER-2014-049790

PATIENT
  Age: 25 Year
  Sex: Female

DRUGS (5)
  1. YASMIN [Suspect]
  2. EPINEPHRINE [Concomitant]
  3. DOPAMINE [Concomitant]
  4. SODIUM BICARBONATE [Concomitant]
  5. ATROPINE [Concomitant]

REACTIONS (2)
  - Pulmonary embolism [Fatal]
  - Deep vein thrombosis [Fatal]
